FAERS Safety Report 7093242-0 (Version None)
Quarter: 2010Q4

REPORT INFORMATION
  Report Type: 
  Country: None (occurrence: None)
  Receive Date: 20101110
  Receipt Date: 20080707
  Transmission Date: 20110411
  Serious: No
  Sender: FDA-Public Use
  Company Number: US-KINGPHARMUSA00001-K200800806

PATIENT
  Age: 65 Year
  Sex: Female

DRUGS (4)
  1. LEVOXYL [Suspect]
     Indication: AUTOIMMUNE THYROIDITIS
     Dosage: 112 MCG, QD
     Route: 048
     Dates: start: 20080612, end: 20080601
  2. LEVOXYL [Suspect]
     Indication: GOITRE
     Dosage: 56 MCG, QD
     Route: 048
     Dates: start: 20080601, end: 20080706
  3. LEVOXYL [Suspect]
     Route: 048
     Dates: start: 20080321, end: 20080502
  4. KEPPRA [Concomitant]
     Indication: CONVULSION
     Dosage: UNK, BID
     Dates: start: 20040101

REACTIONS (5)
  - ASTHENIA [None]
  - FEELING JITTERY [None]
  - HEADACHE [None]
  - HEART RATE INCREASED [None]
  - NERVOUSNESS [None]
